FAERS Safety Report 9320611 (Version 5)
Quarter: 2014Q2

REPORT INFORMATION
  Report Type: Report from Study
  Country: CA (occurrence: CA)
  Receive Date: 20130531
  Receipt Date: 20140506
  Transmission Date: 20141212
  Serious: Yes (Hospitalization, Other)
  Sender: FDA-Public Use
  Company Number: CA-ROCHE-1230085

PATIENT
  Age: 65 Year
  Sex: Female
  Weight: 81.6 kg

DRUGS (14)
  1. RITUXAN [Suspect]
     Indication: RHEUMATOID ARTHRITIS
     Route: 042
     Dates: start: 20101007
  2. PREDNISONE [Concomitant]
  3. METHOTREXATE [Concomitant]
  4. CELEBREX [Concomitant]
  5. CITALOPRAM [Concomitant]
  6. EURO-FOLIC [Concomitant]
  7. PANTOLOC [Concomitant]
  8. CARBOCAL [Concomitant]
  9. ALENDRONATE [Concomitant]
  10. OXAZEPAM [Concomitant]
  11. BROMAZEPAM [Concomitant]
  12. DIPHENHYDRAMINE HCL [Concomitant]
     Indication: PREMEDICATION
     Route: 048
     Dates: start: 20101007
  13. ACETAMINOPHEN [Concomitant]
     Indication: PREMEDICATION
     Route: 048
     Dates: start: 20101007
  14. METHYLPREDNISOLONE [Concomitant]
     Indication: PREMEDICATION
     Route: 042
     Dates: start: 20101007

REACTIONS (3)
  - Endometrial cancer [Recovered/Resolved]
  - Hypovitaminosis [Unknown]
  - Arthralgia [Not Recovered/Not Resolved]
